FAERS Safety Report 13921109 (Version 1)
Quarter: 2017Q3

REPORT INFORMATION
  Report Type: Spontaneous
  Country: IT (occurrence: IT)
  Receive Date: 20170830
  Receipt Date: 20170830
  Transmission Date: 20171127
  Serious: Yes (Death)
  Sender: FDA-Public Use
  Company Number: IT-PFIZER INC-2017370189

PATIENT
  Age: 16 Month
  Sex: Male

DRUGS (3)
  1. PHENOBARBITAL. [Suspect]
     Active Substance: PHENOBARBITAL
  2. LEVETIRACETAM. [Suspect]
     Active Substance: LEVETIRACETAM
  3. PHENYTOIN. [Suspect]
     Active Substance: PHENYTOIN

REACTIONS (4)
  - Flushing [Unknown]
  - Hyperhidrosis [Unknown]
  - Sudden unexplained death in epilepsy [Fatal]
  - Tachycardia [Unknown]
